FAERS Safety Report 22169159 (Version 1)
Quarter: 2023Q2

REPORT INFORMATION
  Report Type: Spontaneous
  Country: CN (occurrence: CN)
  Receive Date: 20230404
  Receipt Date: 20230404
  Transmission Date: 20230722
  Serious: Yes (Hospitalization)
  Sender: FDA-Public Use
  Company Number: CN-ABBOTT-2023A-1361758

PATIENT
  Weight: 12 kg

DRUGS (1)
  1. CLARITHROMYCIN [Suspect]
     Active Substance: CLARITHROMYCIN
     Indication: Accidental exposure to product by child
     Dosage: 5ML POWDER OF KLACID WITH WATER
     Route: 048

REACTIONS (4)
  - Emotional disorder [Recovering/Resolving]
  - Accidental exposure to product by child [Unknown]
  - Gastrointestinal disorder [Recovering/Resolving]
  - Accidental overdose [Recovering/Resolving]
